FAERS Safety Report 6106027-6 (Version None)
Quarter: 2009Q1

REPORT INFORMATION
  Report Type: 
  Country: None (occurrence: None)
  Receive Date: 20090306
  Receipt Date: 20090224
  Transmission Date: 20090719
  Serious: Yes (Death, Hospitalization)
  Sender: FDA-Public Use
  Company Number: DE-ROCHE-615688

PATIENT
  Sex: Male
  Weight: 68 kg

DRUGS (6)
  1. CAPECITABINE [Suspect]
     Indication: METASTATIC GASTRIC CANCER
     Dosage: FREQUENCY: 2L/D, D 1 -14. LAST DOSE PRIOR TO SAE: 18 FEBRUARY 2009.
     Route: 048
     Dates: start: 20090204
  2. OXALIPLATIN [Suspect]
     Indication: METASTATIC GASTRIC CANCER
     Dosage: FORM: INFUSION, FREQUENCY: D1,8,D22. LAST DOSE PRIOR TO SAE: 11 FEBRUARY 2009.
     Route: 042
     Dates: start: 20090204
  3. DOCETAXEL [Suspect]
     Indication: METASTATIC GASTRIC CANCER
     Dosage: FORM: INFUSION, FREQUENCY: D1,D9,D22. LAST DOSE PRIOR TO SAE: 11 FEBRUARY 2009.
     Route: 042
     Dates: start: 20090204
  4. PANTOZOL [Concomitant]
     Dates: start: 20090101
  5. DELIX [Concomitant]
     Dates: start: 20090101
  6. AZOPT [Concomitant]
     Dosage: TDD: 1-0-0, START DATE: SINCE YEAR.

REACTIONS (2)
  - DIARRHOEA [None]
  - FEBRILE NEUTROPENIA [None]
